FAERS Safety Report 24307765 (Version 4)
Quarter: 2025Q2

REPORT INFORMATION
  Report Type: Spontaneous
  Country: US (occurrence: US)
  Receive Date: 20240911
  Receipt Date: 20250407
  Transmission Date: 20250716
  Serious: No
  Sender: SANOFI AVENTIS
  Company Number: US-SA-2024SA261411

PATIENT
  Age: 5 Year
  Sex: Female

DRUGS (1)
  1. DUPIXENT [Suspect]
     Active Substance: DUPILUMAB
     Indication: Eczema
     Dosage: 300 MG, Q4W
     Route: 058
     Dates: start: 202407

REACTIONS (11)
  - Eczema [Recovering/Resolving]
  - Erythema [Recovering/Resolving]
  - Scratch [Recovering/Resolving]
  - Skin laceration [Recovering/Resolving]
  - Skin haemorrhage [Recovering/Resolving]
  - Scab [Recovering/Resolving]
  - Skin swelling [Recovering/Resolving]
  - Rash [Unknown]
  - Pruritus [Unknown]
  - Erythema [Unknown]
  - Hypersensitivity [Unknown]

NARRATIVE: CASE EVENT DATE: 20240101
